FAERS Safety Report 5522556-8 (Version None)
Quarter: 2007Q4

REPORT INFORMATION
  Report Type: 
  Country: None (occurrence: None)
  Receive Date: 20071120
  Receipt Date: 20071108
  Transmission Date: 20080405
  Serious: Yes (Hospitalization)
  Sender: FDA-Public Use
  Company Number: US-SANOFI-SYNTHELABO-A03200706459

PATIENT
  Age: 86 Year
  Sex: Female

DRUGS (7)
  1. AGGRENOX [Suspect]
     Indication: DRUG USE FOR UNKNOWN INDICATION
     Dosage: UNK
     Route: 048
  2. LEVOTHYROXINE SODIUM [Concomitant]
     Dosage: UNK
     Route: 048
  3. LEXAPRO [Concomitant]
     Dosage: UNK
     Route: 048
  4. CHLORTHALIDONE [Concomitant]
     Dosage: UNK
     Route: 065
  5. NORVASC [Concomitant]
     Dosage: UNK
     Route: 048
  6. SULFASALAZINE [Concomitant]
     Dosage: UNK
     Route: 048
  7. AMBIEN CR [Suspect]
     Indication: INSOMNIA
     Route: 048
     Dates: start: 20071001, end: 20070101

REACTIONS (9)
  - AMNESIA [None]
  - CARDIAC MURMUR [None]
  - CEREBRAL HAEMORRHAGE [None]
  - CONCUSSION [None]
  - FALL [None]
  - HAEMORRHAGE [None]
  - HEAD INJURY [None]
  - LOSS OF CONSCIOUSNESS [None]
  - SOMNAMBULISM [None]
